FAERS Safety Report 23685086 (Version 1)
Quarter: 2024Q1

REPORT INFORMATION
  Report Type: Spontaneous
  Country: NL (occurrence: NL)
  Receive Date: 20240329
  Receipt Date: 20240329
  Transmission Date: 20240410
  Serious: Yes (Death)
  Sender: FDA-Public Use
  Company Number: NL-BoehringerIngelheim-2024-BI-017572

PATIENT
  Age: 70 Year
  Sex: Male

DRUGS (2)
  1. OFEV [Suspect]
     Active Substance: NINTEDANIB
     Indication: Product used for unknown indication
     Dates: start: 201906, end: 202006
  2. Mycofenolaatmofetil [Concomitant]
     Dates: start: 2015, end: 202106

REACTIONS (2)
  - Death [Fatal]
  - Drug ineffective [Recovered/Resolved]

NARRATIVE: CASE EVENT DATE: 20190601
